FAERS Safety Report 9359033 (Version 2)
Quarter: 2013Q2

REPORT INFORMATION
  Report Type: Spontaneous
  Country: US (occurrence: US)
  Receive Date: 20130620
  Receipt Date: 20130627
  Transmission Date: 20140414
  Serious: Yes (Other)
  Sender: FDA-Public Use
  Company Number: US-BAXTER-2013BAX022470

PATIENT
  Age: 26 Year
  Sex: Male

DRUGS (1)
  1. DIANEAL LOW CALCIUM [Suspect]
     Indication: PERITONEAL DIALYSIS
     Route: 033
     Dates: start: 201205

REACTIONS (3)
  - Peritoneal dialysis complication [Recovered/Resolved]
  - Catheter site infection [Recovered/Resolved]
  - Sensation of pressure [Recovered/Resolved]
